FAERS Safety Report 10262022 (Version 2)
Quarter: 2014Q2

REPORT INFORMATION
  Report Type: Report from Study
  Country: CA (occurrence: CA)
  Receive Date: 20140626
  Receipt Date: 20140626
  Transmission Date: 20141212
  Serious: Yes (Other)
  Sender: FDA-Public Use
  Company Number: CA-JNJFOC-20140515054

PATIENT
  Sex: Female
  Weight: 58.06 kg

DRUGS (3)
  1. SIMPONI [Suspect]
     Indication: ANKYLOSING SPONDYLITIS
     Route: 058
     Dates: start: 201307, end: 201401
  2. SIMPONI [Suspect]
     Indication: PSORIATIC ARTHROPATHY
     Route: 058
     Dates: start: 201307, end: 201401
  3. METHOTREXATE [Concomitant]
     Route: 065

REACTIONS (6)
  - Guttate psoriasis [Unknown]
  - Drug ineffective [Unknown]
  - Chronic sinusitis [Unknown]
  - Streptococcal infection [Not Recovered/Not Resolved]
  - Cystitis interstitial [Not Recovered/Not Resolved]
  - Alopecia [Unknown]
